FAERS Safety Report 24721529 (Version 1)
Quarter: 2024Q4

REPORT INFORMATION
  Report Type: Spontaneous
  Country: US (occurrence: None)
  Receive Date: 20241210
  Receipt Date: 20241210
  Transmission Date: 20250114
  Serious: Yes (Death)
  Sender: Public
  Company Number: None

PATIENT
  Age: 45 Year
  Sex: Male
  Weight: 66.8 kg

DRUGS (4)
  1. MYCOPHENOLIC ACID [Suspect]
     Active Substance: MYCOPHENOLIC ACID
     Indication: Renal transplant
     Dosage: FREQUENCY : TWICE A DAY;?
     Route: 048
     Dates: start: 20221104, end: 20241201
  2. TACROLIMUS [Suspect]
     Active Substance: TACROLIMUS
     Indication: Renal transplant
     Dosage: FREQUENCY : TWICE A DAY;?
     Route: 048
     Dates: start: 20220708, end: 20241201
  3. dexcom g7 sensors [Concomitant]
     Dates: start: 20240806, end: 20241201
  4. zarxio 460 mcg/0.8 ml [Concomitant]
     Dates: start: 20241031, end: 20241103

REACTIONS (1)
  - Death [None]

NARRATIVE: CASE EVENT DATE: 20241201
